FAERS Safety Report 7064207 (Version 45)
Quarter: 2021Q4

REPORT INFORMATION
  Report Type: Spontaneous
  Country: GB (occurrence: GB)
  Receive Date: 20090727
  Receipt Date: 20211221
  Transmission Date: 20220303
  Serious: Yes (Life-Threatening, Hospitalization, Disabling, Congenital Anomaly, Other)
  Sender: FDA-Public Use
  Company Number: GB-MHRA-ADR 20548096

PATIENT
  Age: 1 Hour
  Sex: Female
  Weight: 2.2 kg

DRUGS (43)
  1. APTIVUS [Suspect]
     Active Substance: TIPRANAVIR
     Indication: HIV infection
     Dosage: UNK.
     Route: 064
     Dates: start: 20060905, end: 20081023
  2. APTIVUS [Suspect]
     Active Substance: TIPRANAVIR
     Indication: HIV infection
     Route: 064
     Dates: start: 20060905, end: 20081023
  3. APTIVUS [Suspect]
     Active Substance: TIPRANAVIR
     Dosage: UNK
     Route: 064
  4. INTELENCE [Suspect]
     Active Substance: ETRAVIRINE
     Indication: Antiretroviral therapy
     Dosage: 500 MG, BID. CUMULATIVE DOSE TO FIRST REACTION 65500.0
     Route: 064
     Dates: start: 20081023
  5. INTELENCE [Suspect]
     Active Substance: ETRAVIRINE
     Indication: HIV infection
     Route: 064
     Dates: start: 20081023
  6. INTELENCE [Suspect]
     Active Substance: ETRAVIRINE
     Route: 064
  7. ISENTRESS [Suspect]
     Active Substance: RALTEGRAVIR POTASSIUM
     Indication: HIV infection
     Dosage: BID. CUMULATIVE DOSE TO FIRST REACTION 104800
     Route: 064
  8. ISENTRESS [Suspect]
     Active Substance: RALTEGRAVIR POTASSIUM
     Indication: HIV infection
     Dosage: 400 MG, QD
     Route: 064
     Dates: start: 20081023, end: 20090221
  9. NORVIR [Suspect]
     Active Substance: RITONAVIR
     Indication: HIV infection
     Dosage: 100 MG, QD. CUMULATIVE DOSE TO FIRST REACTION 26200.0
     Route: 064
     Dates: start: 20081023
  10. NORVIR [Suspect]
     Active Substance: RITONAVIR
     Dosage: 200 MG, QD
     Route: 064
     Dates: start: 20060905, end: 20081022
  11. NORVIR [Suspect]
     Active Substance: RITONAVIR
     Dosage: 100 MG, QD
     Route: 064
     Dates: start: 20060905, end: 20081022
  12. NORVIR [Suspect]
     Active Substance: RITONAVIR
     Route: 064
  13. PREZISTA [Suspect]
     Active Substance: DARUNAVIR ETHANOLATE
     Indication: HIV infection
     Dosage: 1200 MG. CUMULATIVE DOSE TO FIRST REACTION 157200.0
     Route: 064
     Dates: start: 20081023
  14. PREZISTA [Suspect]
     Active Substance: DARUNAVIR ETHANOLATE
     Indication: HIV infection
  15. TRUVADA [Suspect]
     Active Substance: EMTRICITABINE\TENOFOVIR DISOPROXIL FUMARATE
     Indication: HIV infection
     Dosage: UNK UNK, U
     Route: 064
     Dates: start: 20070605, end: 20081023
  16. TRUVADA [Suspect]
     Active Substance: EMTRICITABINE\TENOFOVIR DISOPROXIL FUMARATE
     Indication: HIV infection
  17. NOVORAPID [Concomitant]
     Active Substance: INSULIN ASPART
     Indication: Gestational diabetes
     Route: 064
  18. NOVORAPID [Concomitant]
     Active Substance: INSULIN ASPART
     Route: 064
  19. NOVORAPID [Concomitant]
     Active Substance: INSULIN ASPART
     Dosage: 200 MG, BID
     Route: 064
  20. NOVORAPID [Concomitant]
     Active Substance: INSULIN ASPART
     Route: 064
  21. NOVORAPID [Concomitant]
     Active Substance: INSULIN ASPART
     Route: 064
  22. TIPRANAVIR [Suspect]
     Active Substance: TIPRANAVIR
     Indication: Exposure during pregnancy
     Dosage: UNK
     Route: 064
     Dates: start: 20070605, end: 200810
  23. ZIDOVUDINE [Suspect]
     Active Substance: ZIDOVUDINE
     Indication: Product used for unknown indication
     Route: 064
  24. RALTEGRAVIR [Suspect]
     Active Substance: RALTEGRAVIR
     Dosage: 400 MG, QD. CUMULATIVE DOSE TO FIRST REACTION 52400.0
     Route: 064
     Dates: start: 20081023, end: 20090221
  25. RALTEGRAVIR [Suspect]
     Active Substance: RALTEGRAVIR
     Indication: Product used for unknown indication
  26. RALTEGRAVIR [Suspect]
     Active Substance: RALTEGRAVIR
     Indication: Product used for unknown indication
  27. ETRAVIRINE [Suspect]
     Active Substance: ETRAVIRINE
     Indication: Product used for unknown indication
     Dosage: 100 MG, QD. CUMULATIVE DOSE TO FIRST REACTION 131000.0
     Route: 064
     Dates: start: 20081023
  28. ETRAVIRINE [Suspect]
     Active Substance: ETRAVIRINE
     Indication: Product used for unknown indication
  29. ENFUVIRTIDE [Concomitant]
     Active Substance: ENFUVIRTIDE
     Indication: Product used for unknown indication
     Route: 064
  30. ENFUVIRTIDE [Concomitant]
     Active Substance: ENFUVIRTIDE
     Indication: Product used for unknown indication
     Dosage: UNK
     Route: 064
  31. ENFUVIRTIDE [Concomitant]
     Active Substance: ENFUVIRTIDE
     Route: 064
  32. PREDNISOLONE [Concomitant]
     Active Substance: PREDNISOLONE
     Indication: Product used for unknown indication
     Route: 064
  33. PREDNISOLONE [Concomitant]
     Active Substance: PREDNISOLONE
     Indication: Product used for unknown indication
     Dosage: 25 MG, QD
     Route: 064
  34. PREDNISOLONE [Concomitant]
     Active Substance: PREDNISOLONE
     Route: 064
  35. ZIDOVUDINE [Concomitant]
     Active Substance: ZIDOVUDINE
     Indication: Product used for unknown indication
     Route: 064
  36. NITROUS OXIDE [Concomitant]
     Active Substance: NITROUS OXIDE
     Indication: Product used for unknown indication
     Route: 064
  37. NITROUS OXIDE [Concomitant]
     Active Substance: NITROUS OXIDE
     Indication: Product used for unknown indication
     Dosage: UNK
     Route: 064
  38. NITROUS OXIDE [Concomitant]
     Active Substance: NITROUS OXIDE
     Route: 064
  39. OXYGEN [Concomitant]
     Active Substance: OXYGEN
     Indication: Product used for unknown indication
     Route: 064
  40. OXYGEN [Concomitant]
     Active Substance: OXYGEN
     Indication: Product used for unknown indication
     Dosage: UNK
     Route: 064
  41. OXYGEN [Concomitant]
     Active Substance: OXYGEN
     Route: 064
  42. ISENTRESS [Suspect]
     Active Substance: RALTEGRAVIR POTASSIUM
     Indication: HIV infection
     Dosage: BID
     Route: 064
  43. ISENTRESS [Suspect]
     Active Substance: RALTEGRAVIR POTASSIUM
     Dosage: 400 MG, QD
     Route: 064
     Dates: start: 20081023, end: 20090221

REACTIONS (37)
  - Spina bifida [Unknown]
  - Anencephaly [Unknown]
  - Neural tube defect [Unknown]
  - Congenital ectopic bladder [Unknown]
  - Meningomyelocele [Recovered/Resolved with Sequelae]
  - Exomphalos [Recovered/Resolved with Sequelae]
  - Exomphalos [Recovered/Resolved with Sequelae]
  - Sepsis neonatal [Recovered/Resolved]
  - Caudal regression syndrome [Recovered/Resolved with Sequelae]
  - Congenital genital malformation [Recovered/Resolved with Sequelae]
  - Cloacal exstrophy [Recovered/Resolved with Sequelae]
  - Anal atresia [Recovered/Resolved with Sequelae]
  - Spine malformation [Recovered/Resolved with Sequelae]
  - Bladder agenesis [Recovered/Resolved with Sequelae]
  - Gastrointestinal malformation [Unknown]
  - Exomphalos [Recovered/Resolved with Sequelae]
  - Fibrosis [Unknown]
  - Genitalia external ambiguous [Recovered/Resolved with Sequelae]
  - Umbilical cord abnormality [Unknown]
  - Tethered cord syndrome [Recovered/Resolved with Sequelae]
  - Erythema [Recovered/Resolved]
  - Lipodystrophy acquired [Unknown]
  - Gastrointestinal disorder congenital [Unknown]
  - Meconium stain [Recovered/Resolved with Sequelae]
  - Gastrointestinal disorder congenital [Unknown]
  - Lipodystrophy acquired [Not Recovered/Not Resolved]
  - Congenital musculoskeletal anomaly [Recovered/Resolved]
  - Umbilical cord abnormality [Recovered/Resolved with Sequelae]
  - Bladder agenesis [Unknown]
  - Musculoskeletal deformity [Recovered/Resolved with Sequelae]
  - Blood iron decreased [Recovered/Resolved]
  - Congenital anomaly [Unknown]
  - Musculoskeletal discomfort [Recovered/Resolved with Sequelae]
  - Foetal exposure during pregnancy [Recovered/Resolved]
  - Sepsis [Recovered/Resolved]
  - Premature baby [Recovered/Resolved]
  - Premature baby [Recovered/Resolved]

NARRATIVE: CASE EVENT DATE: 20080614
